FAERS Safety Report 17750477 (Version 5)
Quarter: 2022Q4

REPORT INFORMATION
  Report Type: Other
  Country: AU (occurrence: AU)
  Receive Date: 20200506
  Receipt Date: 20221107
  Transmission Date: 20230113
  Serious: Yes (Other)
  Sender: FDA-Public Use
  Company Number: AU-PAREXEL-2019AU004115

PATIENT
  Sex: Male

DRUGS (6)
  1. ELIGARD [Suspect]
     Active Substance: LEUPROLIDE ACETATE
     Indication: Prostate cancer
     Dosage: 45 MILLIGRAM, Q 6 MONTH
     Route: 058
  2. DENOSUMAB [Suspect]
     Active Substance: DENOSUMAB
     Indication: Product used for unknown indication
     Dosage: UNK
  3. ZYTIGA [Suspect]
     Active Substance: ABIRATERONE ACETATE
     Indication: Product used for unknown indication
     Dosage: UNK
  4. ZYTIGA [Suspect]
     Active Substance: ABIRATERONE ACETATE
     Dosage: 500 MG, EVERY 2 DAYS
  5. PREDNISOLONE [Suspect]
     Active Substance: PREDNISOLONE
     Indication: Product used for unknown indication
     Dosage: UNK
  6. PREDNISOLONE [Suspect]
     Active Substance: PREDNISOLONE
     Dosage: UNK, QD

REACTIONS (11)
  - Osteonecrosis of jaw [Unknown]
  - Dementia Alzheimer^s type [Unknown]
  - Influenza [Unknown]
  - Dyspnoea [Unknown]
  - Somnolence [Unknown]
  - Asthenia [Unknown]
  - Muscle atrophy [Unknown]
  - Malaise [Unknown]
  - Myalgia [Unknown]
  - Fatigue [Not Recovered/Not Resolved]
  - Prostatic specific antigen increased [Unknown]
